FAERS Safety Report 21951171 (Version 16)
Quarter: 2024Q4

REPORT INFORMATION
  Report Type: Report from Study
  Country: CO (occurrence: CO)
  Receive Date: 20230203
  Receipt Date: 20241216
  Transmission Date: 20250115
  Serious: Yes (Hospitalization, Other)
  Sender: NOVARTIS
  Company Number: CO-002147023-NVSC2022CO134728

PATIENT
  Age: 59 Year
  Sex: Male
  Weight: 65 kg

DRUGS (9)
  1. COSENTYX [Suspect]
     Active Substance: SECUKINUMAB
     Indication: Psoriatic arthropathy
     Dosage: 300 MG, QMO (AMPOULE)
     Route: 058
  2. COSENTYX [Suspect]
     Active Substance: SECUKINUMAB
     Dosage: 150 MG, Q2W (ONCE EVERY TWO WEEKS/ EVERY 15 DAYS)
     Route: 058
     Dates: start: 20191118
  3. COSENTYX [Suspect]
     Active Substance: SECUKINUMAB
     Dosage: 150 MG, QMO (SINCE TWO YEARS AGO)
     Route: 058
     Dates: start: 202111
  4. COSENTYX [Suspect]
     Active Substance: SECUKINUMAB
     Dosage: 300 MG, QMO
     Route: 058
     Dates: start: 20231113
  5. COSENTYX [Suspect]
     Active Substance: SECUKINUMAB
     Dosage: 150 MG, Q2W (ONCE EVERY TWO WEEKS/ BIWEEKLY)
     Route: 058
  6. PREDNISOLONE [Concomitant]
     Active Substance: PREDNISOLONE
     Indication: Arthritis
     Dosage: 5 MG, QD (SINCE 20 YEARS AGO)
     Route: 048
  7. PREDNISOLONE [Concomitant]
     Active Substance: PREDNISOLONE
     Dosage: 5 MG, BID (5 MG IN THE MORNING AND 5 MG IN THE NIGHT)
     Route: 065
     Dates: end: 202311
  8. SORIDERM [Concomitant]
     Indication: Psoriasis
     Dosage: UNK (SINCE 20 YEARS AGO) (TOPICAL USE)
     Route: 065
  9. MAGNESIUM [Concomitant]
     Active Substance: MAGNESIUM
     Indication: Product used for unknown indication
     Dosage: UNK
     Route: 065

REACTIONS (23)
  - Nephrolithiasis [Recovered/Resolved]
  - Influenza [Unknown]
  - Pulmonary congestion [Recovering/Resolving]
  - Pain [Unknown]
  - Pruritus [Recovered/Resolved]
  - Bronchial disorder [Unknown]
  - Product prescribing error [Unknown]
  - Product use issue [Unknown]
  - Therapeutic product effect incomplete [Unknown]
  - Drug ineffective [Recovered/Resolved]
  - Vitamin C deficiency [Not Recovered/Not Resolved]
  - Secretion discharge [Not Recovered/Not Resolved]
  - Malaise [Not Recovered/Not Resolved]
  - Nasal obstruction [Not Recovered/Not Resolved]
  - Nasal congestion [Recovered/Resolved]
  - Rhinalgia [Unknown]
  - Influenza like illness [Unknown]
  - Upper respiratory tract congestion [Unknown]
  - Discomfort [Unknown]
  - Chest pain [Unknown]
  - Skin plaque [Not Recovered/Not Resolved]
  - Rhinitis [Unknown]
  - Off label use [Unknown]

NARRATIVE: CASE EVENT DATE: 20231213
